FAERS Safety Report 9242152 (Version 3)
Quarter: 2014Q1

REPORT INFORMATION
  Report Type: Spontaneous
  Country: AU (occurrence: AU)
  Receive Date: 20130419
  Receipt Date: 20140124
  Transmission Date: 20141002
  Serious: Yes (Hospitalization)
  Sender: FDA-Public Use
  Company Number: AU-PFIZER INC-2013120925

PATIENT
  Age: 34 Year
  Sex: Female

DRUGS (6)
  1. CISPLATIN [Suspect]
     Indication: LUNG ADENOCARCINOMA
     Dosage: UNK
     Dates: start: 20130228
  2. GEMCITABINE HYDROCHLORIDE [Suspect]
     Indication: LUNG ADENOCARCINOMA
     Dosage: UNK
     Dates: start: 20130228
  3. DEXAMETHASONE [Concomitant]
     Route: 048
  4. MEGAFOL [Concomitant]
     Route: 048
  5. VALPROATE SODIUM [Concomitant]
     Dosage: 2X/DAY
     Route: 048
  6. MORPHINE SULFATE [Concomitant]
     Dosage: 10 MG, 2X/DAY
     Route: 048

REACTIONS (3)
  - Mucosal inflammation [Recovered/Resolved]
  - Disease progression [Unknown]
  - Lung adenocarcinoma [Unknown]
